FAERS Safety Report 7791590-X (Version None)
Quarter: 2011Q3

REPORT INFORMATION
  Report Type: 
  Country: None (occurrence: None)
  Receive Date: 20110930
  Receipt Date: 20110930
  Transmission Date: 20111222
  Serious: Yes (Life-Threatening)
  Sender: FDA-Public Use
  Company Number: None

PATIENT
  Age: 49 Year
  Sex: Female
  Weight: 90.7194 kg

DRUGS (5)
  1. EFFEXOR XR [Suspect]
     Indication: MAJOR DEPRESSION
     Dosage: 150 + 75 QD }3 YEARS
  2. CYCLOBENZAPRINE [Concomitant]
  3. NUCYNTA [Suspect]
     Indication: POST LAMINECTOMY SYNDROME
     Dosage: 50MG QID
     Dates: start: 20110818
  4. TRAZODONE HCL [Concomitant]
  5. VYTORIN [Concomitant]

REACTIONS (4)
  - BLOOD PRESSURE INCREASED [None]
  - DRUG INTERACTION [None]
  - CHEST PAIN [None]
  - HEADACHE [None]
